FAERS Safety Report 4516245-6 (Version None)
Quarter: 2004Q4

REPORT INFORMATION
  Report Type: 
  Country: None (occurrence: None)
  Receive Date: 20041004
  Receipt Date: 20030909
  Transmission Date: 20050328
  Serious: Yes (Hospitalization)
  Sender: FDA-Public Use
  Company Number: 140026USA

PATIENT
  Sex: Female

DRUGS (13)
  1. AMIKACIN [Suspect]
     Indication: URINARY TRACT INFECTION
     Dosage: 1000 MILLIGRAM , QD, INTRAVENOUS (NOS)
     Route: 042
     Dates: start: 20040723
  2. LORAZEPAM [Concomitant]
  3. MULTI-VITAMINS [Concomitant]
  4. FOLIC ACID [Concomitant]
  5. LANSOPRAZOLE [Concomitant]
  6. NEPHRO TUBE FEED [Concomitant]
  7. TYLENOL (CAPLET) [Concomitant]
  8. LEXAPRO [Concomitant]
  9. ASPIRIN [Concomitant]
  10. ACETAMINOPHEN W/ CODEINE [Concomitant]
  11. CALCIUM ACETATE [Concomitant]
  12. HUMULIN 70/30 [Concomitant]
  13. SLIDING SCALE INSULIN [Concomitant]

REACTIONS (4)
  - AZOTAEMIA [None]
  - CARDIAC FAILURE CONGESTIVE [None]
  - MENTAL STATUS CHANGES [None]
  - RENAL FAILURE ACUTE [None]
